FAERS Safety Report 6899582-X (Version None)
Quarter: 2010Q3

REPORT INFORMATION
  Report Type: 
  Country: None (occurrence: None)
  Receive Date: 20100803
  Receipt Date: 20100716
  Transmission Date: 20110219
  Serious: Yes (Disabling, Other)
  Sender: FDA-Public Use
  Company Number: GB-RANBAXY-2010RR-36292

PATIENT
  Sex: Male
  Weight: 69.9 kg

DRUGS (14)
  1. SIMVASTATIN [Suspect]
     Indication: BLOOD CHOLESTEROL INCREASED
     Dosage: 40 MG, QD
     Route: 048
     Dates: start: 20080101, end: 20100629
  2. AMLODIPINE [Concomitant]
     Dosage: 5 MG, QD
  3. BUPRENORPHINE [Concomitant]
     Dosage: UNK
     Route: 060
  4. BUPRENORPHINE [Concomitant]
     Dosage: 1 DF, 2/WEEK
     Route: 062
  5. FLUTICASONE PROPIONATE [Suspect]
     Dosage: 100 UG, BID
  6. INDORAMIN [Concomitant]
     Dosage: 20 MG, QD
  7. LANSOPRAZOLE [Concomitant]
     Dosage: 30 MG, QD
  8. METOCLOPRAMIDE [Concomitant]
     Dosage: 10 MG, TID
  9. MIRTAZAPINE [Concomitant]
     Dosage: 30 MG, QD
  10. ACETAMINOPHEN [Concomitant]
  11. ALBUTEROL [Concomitant]
     Dosage: 100 UG, PRN
     Route: 055
  12. SALMETEROL AND FLUTICASONE [Suspect]
     Dosage: 2 DF, BID
     Route: 055
  13. TEGRETOL [Concomitant]
     Dosage: 200 MG, QD
  14. URSODIOL [Concomitant]
     Dosage: 250 MG, BID

REACTIONS (2)
  - ASTHENIA [None]
  - MUSCLE ATROPHY [None]
